FAERS Safety Report 9385627 (Version 1)
Quarter: 2013Q3

REPORT INFORMATION
  Report Type: Spontaneous
  Country: HU (occurrence: HU)
  Receive Date: 20130705
  Receipt Date: 20130705
  Transmission Date: 20140515
  Serious: Yes (Other)
  Sender: FDA-Public Use
  Company Number: HU-GLAXOSMITHKLINE-B0705546A

PATIENT
  Age: 68 Year
  Sex: Male

DRUGS (1)
  1. VOTRIENT [Suspect]
     Indication: RENAL NEOPLASM
     Dosage: 800MG PER DAY
     Route: 048
     Dates: start: 20110103, end: 201302

REACTIONS (6)
  - Hepatic enzyme increased [Not Recovered/Not Resolved]
  - Malignant neoplasm progression [Unknown]
  - Hair colour changes [Unknown]
  - Decreased appetite [Unknown]
  - Weight decreased [Unknown]
  - Diarrhoea [Unknown]
